FAERS Safety Report 10629814 (Version 1)
Quarter: 2014Q4

REPORT INFORMATION
  Report Type: Spontaneous
  Country: US (occurrence: US)
  Receive Date: 20141205
  Receipt Date: 20141205
  Transmission Date: 20150529
  Serious: No
  Sender: FDA-Public Use
  Company Number: US-BRISTOL-MYERS SQUIBB COMPANY-20778098

PATIENT
  Age: 61 Year
  Sex: Female
  Weight: 105.67 kg

DRUGS (2)
  1. MICARDIS [Concomitant]
     Active Substance: TELMISARTAN
     Indication: HYPERTENSION
  2. BYETTA [Suspect]
     Active Substance: EXENATIDE
     Indication: TYPE 2 DIABETES MELLITUS
     Route: 058

REACTIONS (3)
  - Impaired gastric emptying [Unknown]
  - Hypertension [Unknown]
  - Anxiety [Unknown]

NARRATIVE: CASE EVENT DATE: 20110401
